FAERS Safety Report 4351794-5 (Version None)
Quarter: 2004Q2

REPORT INFORMATION
  Report Type: 
  Country: None (occurrence: None)
  Receive Date: 20040429
  Receipt Date: 20040303
  Transmission Date: 20050107
  Serious: No
  Sender: FDA-Public Use
  Company Number: 2004-113760-NL

PATIENT
  Age: 22 Year
  Sex: Female
  Weight: 52.3 kg

DRUGS (2)
  1. NUVARING [Suspect]
     Indication: CONTRACEPTION
     Dosage: DR DAILY VAGINAL
     Route: 067
     Dates: start: 20040222
  2. FENUGREEK [Concomitant]

REACTIONS (1)
  - METRORRHAGIA [None]
